FAERS Safety Report 14117170 (Version 1)
Quarter: 2017Q4

REPORT INFORMATION
  Report Type: Spontaneous
  Country: US (occurrence: US)
  Receive Date: 20171023
  Receipt Date: 20171023
  Transmission Date: 20180321
  Serious: No
  Sender: FDA-Public Use
  Company Number: US-PURDUE-USA-2017-0141040

PATIENT
  Sex: Male

DRUGS (2)
  1. OXYCONTIN [Suspect]
     Active Substance: OXYCODONE HYDROCHLORIDE
     Indication: ARTHRALGIA
  2. OXYCONTIN [Suspect]
     Active Substance: OXYCODONE HYDROCHLORIDE
     Indication: BACK PAIN
     Dosage: 30 MG, TID
     Route: 048
     Dates: start: 201606

REACTIONS (6)
  - Wrong technique in product usage process [Unknown]
  - Insomnia [Unknown]
  - Off label use [Unknown]
  - Drug ineffective [Unknown]
  - Pain [Unknown]
  - Product quality issue [Unknown]

NARRATIVE: CASE EVENT DATE: 201606
